FAERS Safety Report 8572394-7 (Version None)
Quarter: 2012Q2

REPORT INFORMATION
  Report Type: 
  Country: None (occurrence: None)
  Receive Date: 20120419
  Receipt Date: 20120419
  Transmission Date: 20120825
  Serious: Yes (Hospitalization)
  Sender: FDA-Public Use
  Company Number: ALL1-2012-00037

PATIENT
  Age: 35 Year
  Sex: Female
  Weight: 49.9 kg

DRUGS (1)
  1. LIALDA [Suspect]
     Indication: COLITIS ULCERATIVE
     Dosage: 1.2 G, 4X/DAY:QID, ORAL
     Route: 048
     Dates: end: 20110501

REACTIONS (2)
  - DRUG INEFFECTIVE [None]
  - COLITIS ULCERATIVE [None]
